FAERS Safety Report 5050883-X (Version None)
Quarter: 2006Q3

REPORT INFORMATION
  Report Type: 
  Country: None (occurrence: None)
  Receive Date: 20060710
  Receipt Date: 20060627
  Transmission Date: 20061208
  Serious: Yes (Death, Life-Threatening)
  Sender: FDA-Public Use
  Company Number: 2006080548

PATIENT
  Age: 52 Year
  Sex: Male
  Weight: 90 kg

DRUGS (1)
  1. SUTENT [Suspect]
     Indication: CLEAR CELL CARCINOMA OF THE KIDNEY
     Dosage: 50 MG (50 MG, 1 IN 1 D), ORAL
     Route: 048
     Dates: start: 20060504, end: 20060601

REACTIONS (6)
  - BLISTER [None]
  - DYSPNOEA EXERTIONAL [None]
  - EMBOLISM [None]
  - LOSS OF CONSCIOUSNESS [None]
  - PULMONARY THROMBOSIS [None]
  - TOXIC EPIDERMAL NECROLYSIS [None]
